FAERS Safety Report 7402725-2 (Version None)
Quarter: 2011Q2

REPORT INFORMATION
  Report Type: 
  Country: None (occurrence: None)
  Receive Date: 20110408
  Receipt Date: 20110401
  Transmission Date: 20111010
  Serious: Yes (Death, Hospitalization, Other)
  Sender: FDA-Public Use
  Company Number: US-ROCHE-758903

PATIENT
  Sex: Male
  Weight: 76.7 kg

DRUGS (33)
  1. ASPIRIN [Concomitant]
     Dates: start: 20090521
  2. OCUVITE LUTEIN [Concomitant]
     Dosage: TDD: 4 TAB GD
     Dates: start: 20070410
  3. ASTELIN [Concomitant]
  4. VITAMIN D [Concomitant]
     Dosage: TDD: 50000IU
     Dates: start: 20080201
  5. FOLIC ACID [Concomitant]
     Dates: start: 20021227
  6. NIFEREX FORTE [Concomitant]
     Dates: start: 20050824
  7. PRAVACHOL [Concomitant]
  8. TOCILIZUMAB [Suspect]
     Indication: RHEUMATOID ARTHRITIS
     Dosage: PATIENT WAS PREVIOUSLY ENROLLED IN STUDY WA18063.
     Route: 042
  9. TOCILIZUMAB [Suspect]
     Dosage: FORM: INFUSION.
     Route: 042
     Dates: start: 20050809
  10. ASPIRIN [Concomitant]
     Dates: start: 19980904
  11. MIRALAX [Concomitant]
     Dosage: TDD: 2 CAPSULES OD
     Dates: start: 20061207
  12. FUROSEMIDE [Concomitant]
     Dates: start: 19980901
  13. ATENOLOL [Concomitant]
     Dates: start: 20020601
  14. DIGOXIN [Concomitant]
     Dates: start: 20060901
  15. CALCITRIOL [Concomitant]
  16. LASIX [Concomitant]
     Dates: start: 20091128
  17. ACETAMINOPHEN [Concomitant]
     Dosage: DRUG NAME REPORTED AS TYLENOL ES.
     Dates: start: 20011109
  18. OMEPRAZOLE [Concomitant]
     Dates: start: 20060125
  19. AIRTAL [Concomitant]
     Dosage: DRUG NAME REPORTED AS AICLOFENAC
     Dates: start: 20041202
  20. TOCILIZUMAB [Suspect]
     Route: 042
     Dates: start: 20100927
  21. PREDNISONE [Concomitant]
     Route: 048
     Dates: start: 19980904
  22. ACETAMINOPHEN AND OXYCODONE HCL [Concomitant]
     Dosage: TDD: PRN 2 TABS
     Dates: start: 20101019
  23. AMIODARONE [Concomitant]
  24. TOCILIZUMAB [Suspect]
     Route: 042
     Dates: start: 19980904
  25. TOCILIZUMAB [Suspect]
     Route: 042
     Dates: start: 20101220
  26. DICLOFENAC [Concomitant]
     Dosage: TDD REPORTED AS 150
     Dates: start: 20041202
  27. AMBIEN [Concomitant]
  28. PERCOCET-5 [Concomitant]
     Dosage: DRUG NAME PERCOCET 5/325
     Dates: start: 20101019
  29. TOCILIZUMAB [Suspect]
     Route: 042
     Dates: start: 20100831
  30. TOCILIZUMAB [Suspect]
     Route: 042
     Dates: start: 20110117
  31. METHOTREXATE [Suspect]
     Route: 048
     Dates: start: 20020129
  32. METHOTREXATE [Suspect]
     Dosage: TDD: 15 MG/WEEK
     Route: 048
     Dates: start: 20070618, end: 20110209
  33. DARVOCET-N 50 [Concomitant]
     Dosage: TDD: 650/100 MG

REACTIONS (2)
  - PANCYTOPENIA [None]
  - PNEUMONIA [None]
